FAERS Safety Report 11682850 (Version 1)
Quarter: 2015Q4

REPORT INFORMATION
  Report Type: Spontaneous
  Country: VE (occurrence: VE)
  Receive Date: 20151029
  Receipt Date: 20151029
  Transmission Date: 20160304
  Serious: Yes (Other)
  Sender: FDA-Public Use
  Company Number: PHHY2015VE140392

PATIENT
  Age: 73 Year
  Sex: Male

DRUGS (1)
  1. STALEVO [Suspect]
     Active Substance: CARBIDOPA\ENTACAPONE\LEVODOPA
     Indication: PARKINSON^S DISEASE
     Dosage: 50 MG, BID
     Route: 048
     Dates: end: 20151015

REACTIONS (1)
  - Diplegia [Not Recovered/Not Resolved]

NARRATIVE: CASE EVENT DATE: 20151025
